FAERS Safety Report 8401035-4 (Version None)
Quarter: 2012Q2

REPORT INFORMATION
  Report Type: 
  Country: None (occurrence: None)
  Receive Date: 20120525
  Receipt Date: 20120518
  Transmission Date: 20120825
  Serious: Yes (Hospitalization)
  Sender: FDA-Public Use
  Company Number: US-008447

PATIENT
  Age: 64 Year
  Sex: Male
  Weight: 98.4306 kg

DRUGS (6)
  1. DEGARELIX 240 MG [Suspect]
     Indication: PROSTATE CANCER
     Dosage: (240 MG 1X SUBCUTANEOUS)
     Route: 058
     Dates: start: 20120517, end: 20120517
  2. ASPIRIN [Concomitant]
  3. ZESTRIL [Concomitant]
  4. TIAZAC [Concomitant]
  5. CRESTOR [Concomitant]
  6. XYZAL [Concomitant]

REACTIONS (6)
  - NAUSEA [None]
  - GASTROINTESTINAL INFLAMMATION [None]
  - INCORRECT ROUTE OF DRUG ADMINISTRATION [None]
  - INJECTION SITE INFLAMMATION [None]
  - INJECTION SITE PAIN [None]
  - ABDOMINAL PAIN [None]
